FAERS Safety Report 22130181 (Version 4)
Quarter: 2023Q2

REPORT INFORMATION
  Report Type: Spontaneous
  Country: US (occurrence: US)
  Receive Date: 20230323
  Receipt Date: 20230502
  Transmission Date: 20230722
  Serious: No
  Sender: FDA-Public Use
  Company Number: US-BRISTOL-MYERS SQUIBB COMPANY-2023-041179

PATIENT
  Age: 54 Year
  Sex: Male

DRUGS (4)
  1. ELIQUIS [Suspect]
     Active Substance: APIXABAN
     Indication: Malignant connective tissue neoplasm
     Dates: start: 20230130
  2. ELIQUIS [Suspect]
     Active Substance: APIXABAN
     Indication: Soft tissue sarcoma
     Dates: start: 20230207
  3. ELIQUIS [Suspect]
     Active Substance: APIXABAN
     Indication: Kaposi^s sarcoma
  4. ELIQUIS [Suspect]
     Active Substance: APIXABAN
     Indication: Deep vein thrombosis

REACTIONS (2)
  - Peripheral swelling [Unknown]
  - Pain in extremity [Unknown]
